FAERS Safety Report 21388611 (Version 3)
Quarter: 2023Q1

REPORT INFORMATION
  Report Type: Spontaneous
  Country: US (occurrence: US)
  Receive Date: 20220928
  Receipt Date: 20230227
  Transmission Date: 20230418
  Serious: Yes (Other)
  Sender: FDA-Public Use
  Company Number: US-AMGEN-USASP2022166738

PATIENT
  Age: 33 Year
  Sex: Male

DRUGS (2)
  1. AIMOVIG [Suspect]
     Active Substance: ERENUMAB-AOOE
     Indication: Headache
     Dosage: 70 MILLIGRAM, QMO
     Route: 058
  2. GATTEX [Concomitant]
     Active Substance: TEDUGLUTIDE\WATER
     Dosage: UNK

REACTIONS (6)
  - Disability [Unknown]
  - Nausea [Unknown]
  - Dizziness [Unknown]
  - Vomiting [Unknown]
  - Hypertension [Unknown]
  - Vertigo [Unknown]

NARRATIVE: CASE EVENT DATE: 20220101
